FAERS Safety Report 19085490 (Version 1)
Quarter: 2021Q2

REPORT INFORMATION
  Report Type: Spontaneous
  Country: US (occurrence: US)
  Receive Date: 20210401
  Receipt Date: 20210401
  Transmission Date: 20210717
  Serious: No
  Sender: FDA-Public Use
  Company Number: US-IBSA PHARMA-2020-IBS-00684

PATIENT
  Weight: 104 kg

DRUGS (3)
  1. MINOCYCLINE [Suspect]
     Active Substance: MINOCYCLINE HYDROCHLORIDE
  2. DICLOFENAC [Suspect]
     Active Substance: DICLOFENAC
  3. NAPROXEN. [Suspect]
     Active Substance: NAPROXEN

REACTIONS (2)
  - No adverse event [Unknown]
  - Drug ineffective [Unknown]
